FAERS Safety Report 6386709-1 (Version None)
Quarter: 2009Q4

REPORT INFORMATION
  Report Type: 
  Country: None (occurrence: None)
  Receive Date: 20091002
  Receipt Date: 20090923
  Transmission Date: 20100525
  Serious: Yes (Death, Hospitalization, Other)
  Sender: FDA-Public Use
  Company Number: GB-TEVA-210700ISR

PATIENT
  Age: 71 Year
  Sex: Female

DRUGS (1)
  1. METFORMIN [Suspect]

REACTIONS (6)
  - ANAEMIA [None]
  - DEATH [None]
  - MALIGNANT NEOPLASM PROGRESSION [None]
  - MELAENA [None]
  - RECTAL HAEMORRHAGE [None]
  - SEPSIS [None]
